FAERS Safety Report 7544979-8 (Version None)
Quarter: 2011Q2

REPORT INFORMATION
  Report Type: 
  Country: None (occurrence: None)
  Receive Date: 20110614
  Receipt Date: 20110601
  Transmission Date: 20111010
  Serious: Yes (Hospitalization)
  Sender: FDA-Public Use
  Company Number: IT-BAYER-2011-047072

PATIENT
  Age: 83 Year
  Sex: Male

DRUGS (8)
  1. CARDURA [Concomitant]
     Route: 048
  2. RABEPRAZOLE SODIUM [Concomitant]
     Route: 048
  3. ASPIRIN [Concomitant]
     Route: 048
  4. SEROQUEL [Concomitant]
     Route: 048
  5. CIPROFLAXACIN [Suspect]
     Indication: DYSURIA
     Dosage: 500 MG, QD
     Route: 048
     Dates: start: 20110422, end: 20110425
  6. NORVASC [Concomitant]
     Route: 048
  7. SIVASTIN [Concomitant]
     Route: 048
  8. EXELON [Concomitant]
     Dosage: 9.5 MG/24HR, CONT
     Route: 003

REACTIONS (2)
  - FAECALOMA [None]
  - ANURIA [None]
